FAERS Safety Report 5001997-1 (Version None)
Quarter: 2006Q2

REPORT INFORMATION
  Report Type: 
  Country: None (occurrence: None)
  Receive Date: 20060515
  Receipt Date: 20060215
  Transmission Date: 20061013
  Serious: Yes (Hospitalization)
  Sender: FDA-Public Use
  Company Number: US-MERCK-0602USA04453

PATIENT
  Age: 66 Year
  Sex: Female
  Weight: 118 kg

DRUGS (3)
  1. VIOXX [Suspect]
     Indication: ARTHRITIS
     Route: 048
     Dates: start: 20030903, end: 20040102
  2. VIOXX [Suspect]
     Route: 048
     Dates: start: 20040122, end: 20040701
  3. ASPIRIN [Concomitant]
     Route: 065

REACTIONS (3)
  - CHEST PAIN [None]
  - CORONARY ARTERY DISEASE [None]
  - SPINAL LAMINECTOMY [None]
